FAERS Safety Report 8478612-8 (Version None)
Quarter: 2012Q2

REPORT INFORMATION
  Report Type: 
  Country: None (occurrence: None)
  Receive Date: 20120629
  Receipt Date: 20120618
  Transmission Date: 20120825
  Serious: Yes (Death, Life-Threatening, Hospitalization, Other)
  Sender: FDA-Public Use
  Company Number: FR-CELGENEUS-056-21880-12052516

PATIENT
  Sex: Male

DRUGS (6)
  1. DOXORUBICIN HCL [Concomitant]
     Indication: B-CELL LYMPHOMA
     Route: 065
     Dates: start: 20111117, end: 20120304
  2. VINCRISTINE [Concomitant]
     Indication: B-CELL LYMPHOMA
     Route: 065
     Dates: start: 20111117, end: 20120304
  3. REVLIMID [Suspect]
     Indication: B-CELL LYMPHOMA
     Dosage: 25 MILLIGRAM
     Route: 048
     Dates: start: 20111117, end: 20111222
  4. CYCLOPHOSPHAMIDE [Concomitant]
     Indication: B-CELL LYMPHOMA
     Route: 065
     Dates: start: 20111117, end: 20120304
  5. PREDNISONE TAB [Concomitant]
     Indication: B-CELL LYMPHOMA
     Route: 065
     Dates: start: 20111117, end: 20120304
  6. RITUXIMAB [Concomitant]
     Indication: B-CELL LYMPHOMA
     Route: 065
     Dates: start: 20111117, end: 20120304

REACTIONS (1)
  - GASTROINTESTINAL CANCER METASTATIC [None]
